FAERS Safety Report 9896601 (Version 1)
Quarter: 2014Q1

REPORT INFORMATION
  Report Type: Spontaneous
  Country: US (occurrence: US)
  Receive Date: 20140213
  Receipt Date: 20140213
  Transmission Date: 20141002
  Serious: No
  Sender: FDA-Public Use
  Company Number: US-BRISTOL-MYERS SQUIBB COMPANY-19140052

PATIENT
  Age: 28 Year
  Sex: Female

DRUGS (1)
  1. ORENCIA [Suspect]
     Dosage: INTRAVENOUS INFUSION
     Route: 042
     Dates: start: 201211, end: 201305

REACTIONS (4)
  - Cold sweat [Unknown]
  - Flushing [Unknown]
  - Skin disorder [Unknown]
  - Erythema [Unknown]
